FAERS Safety Report 10793144 (Version 1)
Quarter: 2015Q1

REPORT INFORMATION
  Report Type: Report from Study
  Country: DE (occurrence: DE)
  Receive Date: 20150213
  Receipt Date: 20150213
  Transmission Date: 20150721
  Serious: Yes (Hospitalization)
  Sender: FDA-Public Use
  Company Number: DE-ABBVIE-14K-062-1313529-00

PATIENT
  Age: 81 Year
  Sex: Female

DRUGS (13)
  1. PANTOZOL [Concomitant]
     Active Substance: PANTOPRAZOLE SODIUM
     Indication: PRODUCT USED FOR UNKNOWN INDICATION
     Dosage: 1-0-0
  2. PREDNISOLONE. [Concomitant]
     Active Substance: PREDNISOLONE
     Indication: PRODUCT USED FOR UNKNOWN INDICATION
     Dosage: 1-0-0
  3. URIVESC [Concomitant]
     Active Substance: TROSPIUM CHLORIDE
     Indication: PRODUCT USED FOR UNKNOWN INDICATION
     Dosage: 1-0-0
  4. FOLSAN [Concomitant]
     Active Substance: FOLIC ACID
     Indication: PRODUCT USED FOR UNKNOWN INDICATION
  5. HUMIRA [Suspect]
     Active Substance: ADALIMUMAB
     Indication: RHEUMATOID ARTHRITIS
     Route: 058
     Dates: start: 20111013, end: 20140806
  6. METHOTREXATE [Suspect]
     Active Substance: METHOTREXATE
     Indication: PRODUCT USED FOR UNKNOWN INDICATION
     Route: 065
     Dates: start: 200102
  7. SALBUHEXAL [Concomitant]
     Active Substance: ALBUTEROL
     Indication: PRODUCT USED FOR UNKNOWN INDICATION
  8. TILIDIN COMP [Concomitant]
     Active Substance: NALOXONE HYDROCHLORIDE\TILIDINE HYDROCHLORIDE
     Indication: PRODUCT USED FOR UNKNOWN INDICATION
     Dosage: 50/4
     Dates: end: 201408
  9. ACTRAPHANE [Concomitant]
     Active Substance: INSULIN HUMAN
     Indication: PRODUCT USED FOR UNKNOWN INDICATION
     Dates: end: 201408
  10. ALLOPURINOL. [Concomitant]
     Active Substance: ALLOPURINOL
     Indication: PRODUCT USED FOR UNKNOWN INDICATION
     Dosage: 0-0-1
  11. ACTRAPID [Concomitant]
     Active Substance: INSULIN HUMAN
     Indication: PRODUCT USED FOR UNKNOWN INDICATION
     Dates: end: 201408
  12. BISO [Concomitant]
     Indication: PRODUCT USED FOR UNKNOWN INDICATION
     Dosage: 1/2-0-0
  13. TORASEMIDE [Concomitant]
     Active Substance: TORSEMIDE
     Indication: PRODUCT USED FOR UNKNOWN INDICATION
     Dosage: 1/2-0-0, DOSE REDUCED

REACTIONS (42)
  - Endocarditis [Recovered/Resolved]
  - Somnolence [Unknown]
  - Cholelithiasis [Unknown]
  - Hydrocholecystis [Unknown]
  - Aortic valve incompetence [Unknown]
  - Cardiomyopathy [Unknown]
  - Humerus fracture [Unknown]
  - Disorientation [Unknown]
  - Vertebral foraminal stenosis [Unknown]
  - Back pain [Recovering/Resolving]
  - Bone decalcification [Unknown]
  - Aphasia [Unknown]
  - Hiatus hernia [Unknown]
  - Osteochondrosis [Unknown]
  - Nephritis [Unknown]
  - Bile duct stone [Unknown]
  - Pyrexia [Recovered/Resolved]
  - Hypokalaemia [Unknown]
  - Cardiomegaly [Unknown]
  - Staphylococcal sepsis [Recovered/Resolved]
  - Mobility decreased [Unknown]
  - General physical health deterioration [Recovering/Resolving]
  - Septic encephalopathy [Unknown]
  - Inflammatory marker increased [Recovering/Resolving]
  - Arteriosclerosis [Unknown]
  - Left ventricular hypertrophy [Unknown]
  - Diastolic dysfunction [Unknown]
  - Renal cyst [Unknown]
  - Mitral valve incompetence [Unknown]
  - Pericardial effusion [Unknown]
  - Asthenia [Unknown]
  - Spinal osteoarthritis [Unknown]
  - Pancreatic steatosis [Unknown]
  - Diverticulum intestinal [Unknown]
  - Knee arthroplasty [Unknown]
  - Tachycardia [Unknown]
  - Limb deformity [Unknown]
  - Tricuspid valve incompetence [Unknown]
  - Cholangitis [Unknown]
  - Diverticulum oesophageal [Unknown]
  - Cardiac failure [Unknown]
  - Blood glucose decreased [Unknown]

NARRATIVE: CASE EVENT DATE: 201408
